FAERS Safety Report 19769478 (Version 1)
Quarter: 2021Q3

REPORT INFORMATION
  Report Type: Spontaneous
  Country: AU (occurrence: AU)
  Receive Date: 20210831
  Receipt Date: 20210831
  Transmission Date: 20211014
  Serious: Yes (Hospitalization)
  Sender: FDA-Public Use
  Company Number: AU-MYLANLABS-2021M1056734

PATIENT
  Age: 23 Year
  Sex: Male

DRUGS (12)
  1. AMOXICILLIN/CLAVULANIC ACID [Suspect]
     Active Substance: AMOXICILLIN\CLAVULANIC ACID
     Indication: LIVER ABSCESS
     Dosage: 1 DOSAGE FORM, BID
     Route: 065
  2. VANCOMYCIN [Suspect]
     Active Substance: VANCOMYCIN
     Indication: CHRONIC GRANULOMATOUS DISEASE
     Dosage: UNK
     Route: 042
  3. PREDNISOLONE. [Concomitant]
     Active Substance: PREDNISOLONE
     Indication: CHRONIC GRANULOMATOUS DISEASE
     Dosage: 1 MG/KG, PREDNISOLONE 50 MG DAILY
     Route: 048
  4. PREDNISOLONE. [Concomitant]
     Active Substance: PREDNISOLONE
     Indication: LIVER ABSCESS
  5. AMOXICILLIN/CLAVULANIC ACID [Suspect]
     Active Substance: AMOXICILLIN\CLAVULANIC ACID
     Indication: CHRONIC GRANULOMATOUS DISEASE
  6. CIPROFLOXACIN. [Suspect]
     Active Substance: CIPROFLOXACIN
     Indication: LIVER ABSCESS
  7. VANCOMYCIN [Suspect]
     Active Substance: VANCOMYCIN
     Indication: LIVER ABSCESS
  8. CASPOFUNGIN [Suspect]
     Active Substance: CASPOFUNGIN
     Indication: CHRONIC GRANULOMATOUS DISEASE
     Dosage: 50 MILLIGRAM, QD
     Route: 065
  9. CASPOFUNGIN [Suspect]
     Active Substance: CASPOFUNGIN
     Indication: LIVER ABSCESS
  10. MEROPENEM. [Suspect]
     Active Substance: MEROPENEM
     Indication: CHRONIC GRANULOMATOUS DISEASE
     Dosage: 2 GRAM, TID
     Route: 042
  11. CIPROFLOXACIN. [Suspect]
     Active Substance: CIPROFLOXACIN
     Indication: CHRONIC GRANULOMATOUS DISEASE
     Dosage: 500 MILLIGRAM, BID
     Route: 065
  12. MEROPENEM. [Suspect]
     Active Substance: MEROPENEM
     Indication: LIVER ABSCESS

REACTIONS (1)
  - Therapy non-responder [Unknown]
